FAERS Safety Report 25680377 (Version 1)
Quarter: 2025Q3

REPORT INFORMATION
  Report Type: Spontaneous
  Country: US (occurrence: US)
  Receive Date: 20250814
  Receipt Date: 20250814
  Transmission Date: 20251021
  Serious: Yes (Other)
  Sender: AMERICAN REGENT
  Company Number: US-AMERICAN REGENT INC-2025000865

PATIENT
  Sex: Male

DRUGS (2)
  1. FERRIC CARBOXYMALTOSE [Suspect]
     Active Substance: FERRIC CARBOXYMALTOSE
     Indication: Product used for unknown indication
     Route: 042
     Dates: start: 20250124, end: 20250124
  2. PHOSPHORUS [Suspect]
     Active Substance: PHOSPHORUS
     Indication: Hypophosphataemia
     Route: 048
     Dates: start: 202502, end: 202502

REACTIONS (4)
  - Hypophosphataemia [Unknown]
  - Syncope [Unknown]
  - Abdominal discomfort [Unknown]
  - Product quality issue [Unknown]

NARRATIVE: CASE EVENT DATE: 20250101
